FAERS Safety Report 11201438 (Version 9)
Quarter: 2015Q4

REPORT INFORMATION
  Report Type: Spontaneous
  Country: US (occurrence: US)
  Receive Date: 20150619
  Receipt Date: 20151102
  Transmission Date: 20160304
  Serious: Yes (Other)
  Sender: FDA-Public Use
  Company Number: US-ELI_LILLY_AND_COMPANY-US201401008960

PATIENT
  Age: 29 Year
  Sex: Male

DRUGS (8)
  1. CYMBALTA [Suspect]
     Active Substance: DULOXETINE HYDROCHLORIDE
     Dosage: 40 MG, UNKNOWN
     Route: 065
  2. CYMBALTA [Suspect]
     Active Substance: DULOXETINE HYDROCHLORIDE
     Dosage: 60 MG, UNKNOWN
     Route: 065
     Dates: start: 20120409
  3. CYMBALTA [Suspect]
     Active Substance: DULOXETINE HYDROCHLORIDE
     Indication: ANXIETY
     Dosage: 60 MG, QD
     Route: 048
     Dates: start: 2010
  4. CYMBALTA [Suspect]
     Active Substance: DULOXETINE HYDROCHLORIDE
     Dosage: 90 MG, UNKNOWN
     Route: 065
  5. TRAZODONE [Concomitant]
     Active Substance: TRAZODONE HYDROCHLORIDE
     Dosage: UNK, UNKNOWN
     Route: 065
  6. CYMBALTA [Suspect]
     Active Substance: DULOXETINE HYDROCHLORIDE
     Indication: DEPRESSION
     Dosage: 30 MG, QD
     Route: 048
     Dates: start: 2010
  7. CYMBALTA [Suspect]
     Active Substance: DULOXETINE HYDROCHLORIDE
     Dosage: 20 MG, UNKNOWN
     Route: 065
  8. CYMBALTA [Suspect]
     Active Substance: DULOXETINE HYDROCHLORIDE
     Dosage: 30 MG, UNKNOWN
     Route: 065

REACTIONS (30)
  - Yawning [Recovering/Resolving]
  - Blood pressure systolic decreased [Unknown]
  - Nightmare [Recovering/Resolving]
  - Disorientation [Unknown]
  - Irritability [Unknown]
  - Panic attack [Unknown]
  - Feeling abnormal [Unknown]
  - Muscle spasms [Recovering/Resolving]
  - Tremor [Recovering/Resolving]
  - Paraesthesia [Unknown]
  - Insomnia [Unknown]
  - Disturbance in attention [Unknown]
  - Suicidal ideation [Recovered/Resolved]
  - Generalised anxiety disorder [Unknown]
  - Night sweats [Recovering/Resolving]
  - Paraesthesia [Recovering/Resolving]
  - Anxiety [Unknown]
  - Drug ineffective [Unknown]
  - Tachyphrenia [Unknown]
  - Abnormal dreams [Recovering/Resolving]
  - Withdrawal syndrome [Recovering/Resolving]
  - Hallucination [Recovering/Resolving]
  - Dissociation [Unknown]
  - Peripheral coldness [Unknown]
  - Activities of daily living impaired [Unknown]
  - Bruxism [Recovering/Resolving]
  - Depersonalisation [Recovering/Resolving]
  - Thinking abnormal [Unknown]
  - Anxiety [Recovering/Resolving]
  - Muscle twitching [Unknown]

NARRATIVE: CASE EVENT DATE: 20121220
